FAERS Safety Report 6090524-6 (Version None)
Quarter: 2009Q1

REPORT INFORMATION
  Report Type: 
  Country: None (occurrence: None)
  Receive Date: 20090213
  Receipt Date: 20090206
  Transmission Date: 20090719
  Serious: Yes (Hospitalization, Disabling)
  Sender: FDA-Public Use
  Company Number: 200914545

PATIENT
  Age: 64 Year
  Sex: Female
  Weight: 79.3795 kg

DRUGS (23)
  1. VIVAGLOBIN [Suspect]
     Indication: IMMUNODEFICIENCY COMMON VARIABLE
     Dosage: 46 ML Q1W SC; NI SC
     Route: 058
     Dates: start: 20081027, end: 20090112
  2. PREVACID [Concomitant]
  3. COZAAR [Concomitant]
  4. ASPIRIN [Concomitant]
  5. METOPROLOL TARTRATE [Concomitant]
  6. XYZAL [Concomitant]
  7. ADVAIR HFA [Concomitant]
  8. ASMANEX TWISTHALER [Concomitant]
  9. SINGULAIR [Concomitant]
  10. ZANTAC [Concomitant]
  11. DICYCLOMINE [Concomitant]
  12. MYLANTA [Concomitant]
  13. GAS X [Concomitant]
  14. TUMS [Concomitant]
  15. TYLENOL (CAPLET) [Concomitant]
  16. NASONEX [Concomitant]
  17. ASTELIN [Concomitant]
  18. IMODIUM [Concomitant]
  19. CARISOPRODOL [Concomitant]
  20. TRAMADOL HCL [Concomitant]
  21. MELOXICAM [Concomitant]
  22. XANAX [Concomitant]
  23. ASTELIN [Concomitant]

REACTIONS (8)
  - AGITATION [None]
  - DRUG INEFFECTIVE [None]
  - HYPERSENSITIVITY [None]
  - INFUSION SITE ERYTHEMA [None]
  - INFUSION SITE PRURITUS [None]
  - MUSCULOSKELETAL DISORDER [None]
  - NEUROLOGICAL SYMPTOM [None]
  - TYPE IV HYPERSENSITIVITY REACTION [None]
